FAERS Safety Report 6938181-8 (Version None)
Quarter: 2010Q3

REPORT INFORMATION
  Report Type: 
  Country: None (occurrence: None)
  Receive Date: 20100817
  Receipt Date: 20100802
  Transmission Date: 20110219
  Serious: Yes (Death, Hospitalization)
  Sender: FDA-Public Use
  Company Number: 1000015589

PATIENT
  Sex: Male

DRUGS (2)
  1. ESCITALOPRAM OXALATE [Suspect]
     Indication: DEPRESSION
     Dosage: 10 MG (10 MG, 1 IN 1 D), ORAL, 15 MG (15  MG, 1 IN 1 D), ORAL
     Route: 048
     Dates: start: 20100512, end: 20100607
  2. ESCITALOPRAM OXALATE [Suspect]
     Indication: DEPRESSION
     Dosage: 10 MG (10 MG, 1 IN 1 D), ORAL, 15 MG (15  MG, 1 IN 1 D), ORAL
     Route: 048
     Dates: start: 20100608

REACTIONS (2)
  - COMPLETED SUICIDE [None]
  - CONVULSION [None]
